FAERS Safety Report 8925615 (Version 1)
Quarter: 2012Q4

REPORT INFORMATION
  Report Type: 
  Country: US (occurrence: US)
  Receive Date: 20121126
  Receipt Date: 20121126
  Transmission Date: 20130627
  Serious: Yes (Hospitalization)
  Sender: FDA-Public Use
  Company Number: US-BAYER-2012-121929

PATIENT
  Age: 34 Year
  Sex: Female
  Weight: 64.26 kg

DRUGS (37)
  1. YAZ [Suspect]
  2. YASMIN [Suspect]
  3. ALPRAZOLAM [Concomitant]
     Indication: ANXIETY
     Dosage: 0.25 mg, 1 tablet everymorning, and 1 or 2 tablets at bedtime as needed
     Route: 048
     Dates: start: 20080226
  4. PAROXETINE [Concomitant]
     Indication: DEPRESSION
     Dosage: 20 to 25 mg
     Route: 048
     Dates: start: 20080226
  5. TRAZODONE [Concomitant]
     Dosage: 50 mg, as needed
     Route: 048
     Dates: start: 20080226
  6. RANITIDINE [Concomitant]
     Indication: GASTRIC DISORDER
     Dosage: 150 mg, BID
     Route: 048
     Dates: start: 20080307
  7. PAXIL [Concomitant]
     Dosage: 25 mg, every day
     Dates: start: 20080310
  8. XANAX [Concomitant]
     Dosage: 0.25 mg, BID, prn
     Dates: start: 20080310
  9. VERSED [Concomitant]
     Dosage: 2 mg, UNK
     Dates: start: 20080310
  10. SEVOFLURANE [Concomitant]
     Dosage: UNK
     Dates: start: 20080310
  11. FENTANYL [Concomitant]
     Dosage: 10 ml; 75 mcg [total]
     Route: 042
     Dates: start: 20080310
  12. LIDOCAINE [Concomitant]
     Dosage: 30 mg, UNK
     Dates: start: 20080310
  13. PROPOFOL [Concomitant]
     Dosage: 150 mg, UNK
     Dates: start: 20080310
  14. ZOFRAN [Concomitant]
     Dosage: 4 mg, UNK
     Dates: start: 20080310
  15. ROBINUL [Concomitant]
     Dosage: 0.2 mg, UNK
     Dates: start: 20080310
  16. MORPHINE [Concomitant]
     Dosage: 5 mg, UNK
     Dates: start: 20080310
  17. MARCAINE WITH EPINEPHRINE [Concomitant]
     Dosage: 30 ml, UNK
     Dates: start: 20080310
  18. DILAUDID [Concomitant]
     Dosage: 0.7 mg, UNK
     Route: 042
     Dates: start: 20080310
  19. BENADRYL [Concomitant]
     Dosage: 50 mg/1 mL, 12.5 mg
     Route: 042
     Dates: start: 20080310
  20. CALCIUM +VIT D [Concomitant]
     Dosage: 500-200 mg, BID
     Route: 048
     Dates: start: 20080310
  21. VISTARIL [Concomitant]
     Indication: PAIN
     Dosage: 25 to 50 mg, Q3HR
     Route: 048
     Dates: start: 20080310
  22. VISTARIL [Concomitant]
     Indication: MUSCLE SPASM
     Dosage: 25-50 mg, Q3HR
     Route: 030
  23. TYLENOL [Concomitant]
     Indication: PAIN
     Dosage: 650 mg, every 4 to 6 hour
     Route: 048
  24. TYLENOL [Concomitant]
     Indication: ANTIPYRESIS
  25. IBUPROFEN [Concomitant]
     Dosage: 400 mg, every 6 hours,PRN
     Route: 048
  26. ANCEF [Concomitant]
     Dosage: [2] gm;1 gm every 8 hours, 3 doses
     Route: 042
     Dates: start: 20080310, end: 20080311
  27. HYDROCODONE W/ACETAMINOPHEN [Concomitant]
     Indication: PAIN
     Dosage: 5-500 mg, 1 to 2 tablets
     Route: 048
     Dates: start: 20080311
  28. MULTIVITAMIN [Concomitant]
     Dosage: 1 tablet, daily
     Route: 048
     Dates: start: 20080311
  29. PERCOCET [Concomitant]
     Indication: PAIN
     Dosage: 5-325 mg 1 to 2 tablet, Q3HR
     Route: 048
     Dates: start: 20080311
  30. HYDROMORPHONE [Concomitant]
     Indication: PAIN
     Dosage: 1mg/1ml, Q3HR
     Route: 042
     Dates: start: 20080310, end: 20080312
  31. ONDANSETRON [Concomitant]
     Indication: NAUSEA
     Dosage: 4mg/2ml, every 8 hours
     Route: 042
     Dates: start: 20080311, end: 20080312
  32. ONDANSETRON [Concomitant]
     Indication: VOMITING
  33. ATENOLOL [Concomitant]
     Dosage: 50 mg, every 6 hours
     Dates: start: 20080312
  34. KETOROLAC [Concomitant]
     Dosage: 10-30 mg, every 8 hours, 7 doses
     Route: 048
     Dates: start: 20080310, end: 20080313
  35. KETOROLAC [Concomitant]
     Dosage: 10-30 mg, every 8 hours, 7 doses
     Route: 042
     Dates: start: 20080310, end: 20080313
  36. DOCUSATE SODIUM [Concomitant]
     Dosage: 100 mg, BID
     Route: 048
     Dates: start: 20080310, end: 20080314
  37. VICODIN [Concomitant]
     Indication: PAIN

REACTIONS (2)
  - Deep vein thrombosis [None]
  - Pulmonary embolism [None]
